FAERS Safety Report 21989606 (Version 1)
Quarter: 2023Q1

REPORT INFORMATION
  Report Type: Spontaneous
  Country: US (occurrence: None)
  Receive Date: 20230213
  Receipt Date: 20230213
  Transmission Date: 20230418
  Serious: No
  Sender: FDA-Public Use
  Company Number: None

PATIENT
  Age: 78 Year
  Sex: Male
  Weight: 82.55 kg

DRUGS (9)
  1. ABIRATERONE [Suspect]
     Active Substance: ABIRATERONE
     Indication: Prostate cancer
     Dosage: FREQUENCY : DAILY;?
     Route: 048
  2. ACETAMINOPHEN [Concomitant]
  3. DIZEPAM [Concomitant]
  4. LUPRON [Concomitant]
  5. PREDNISONE [Concomitant]
  6. PREGABALIN [Concomitant]
  7. MENS DAILY MULTIVITAMIN [Concomitant]
  8. TRAMADOL [Concomitant]
  9. VITAMIN D3 [Concomitant]

REACTIONS (1)
  - Drug ineffective [None]
